FAERS Safety Report 17997082 (Version 1)
Quarter: 2020Q3

REPORT INFORMATION
  Report Type: Spontaneous
  Country: US (occurrence: US)
  Receive Date: 20200709
  Receipt Date: 20200709
  Transmission Date: 20201103
  Serious: No
  Sender: FDA-Public Use
  Company Number: US-009507513-2006USA004113

PATIENT
  Age: 77 Year
  Sex: Female

DRUGS (2)
  1. JANUMET XR [Suspect]
     Active Substance: METFORMIN HYDROCHLORIDE\SITAGLIPTIN PHOSPHATE
     Indication: DIABETES MELLITUS
     Dosage: 100/1000 MG
     Route: 048
     Dates: start: 2018
  2. JANUMET [Suspect]
     Active Substance: METFORMIN HYDROCHLORIDE\SITAGLIPTIN PHOSPHATE
     Indication: DIABETES MELLITUS
     Dosage: 50/1000 MG, ONCE DAILY
     Route: 048

REACTIONS (9)
  - Drug intolerance [Recovered/Resolved]
  - Rhinorrhoea [Recovered/Resolved]
  - Flatulence [Recovered/Resolved]
  - Wrong technique in product usage process [Unknown]
  - Asthenia [Recovered/Resolved]
  - Nasal congestion [Recovered/Resolved]
  - Epigastric discomfort [Recovered/Resolved]
  - Inappropriate schedule of product administration [Unknown]
  - Headache [Recovered/Resolved]
